FAERS Safety Report 6050244-0 (Version None)
Quarter: 2009Q1

REPORT INFORMATION
  Report Type: 
  Country: None (occurrence: None)
  Receive Date: 20090116
  Receipt Date: 20090113
  Transmission Date: 20090719
  Serious: Yes (Disabling)
  Sender: FDA-Public Use
  Company Number: APP200801182

PATIENT
  Age: 38 Year
  Sex: Female

DRUGS (11)
  1. BUPIVACINE WITH EPINEPHRINE (MARCAIN-ADRENALIN [Suspect]
     Indication: MUSCULOSKELETAL PAIN
     Dosage: 270 ML, 0.25% CONTINUOUS VIA PAIN PUMP, INTRA-ARTICULAR, 1:200,000, 50 ML THEN 30 ML, LOCAL INFILTRA
     Route: 014
     Dates: start: 20051223, end: 20051223
  2. BUPIVACINE WITH EPINEPHRINE (MARCAIN-ADRENALIN [Suspect]
     Indication: MUSCULOSKELETAL PAIN
     Dosage: 270 ML, 0.25% CONTINUOUS VIA PAIN PUMP, INTRA-ARTICULAR, 1:200,000, 50 ML THEN 30 ML, LOCAL INFILTRA
     Route: 014
     Dates: start: 20041018
  3. BUPIVACINE WITH EPINEPHRINE (MARCAIN-ADRENALIN [Suspect]
     Indication: MUSCULOSKELETAL PAIN
     Dosage: 270 ML, 0.25% CONTINUOUS VIA PAIN PUMP, INTRA-ARTICULAR, 1:200,000, 50 ML THEN 30 ML, LOCAL INFILTRA
     Route: 014
     Dates: start: 20041018
  4. I-FLOW ON-Q PAINBUSTER PAIN PUMP [Suspect]
     Indication: MUSCULOSKELETAL PAIN
     Dates: start: 20041018
  5. I-FLOW ON-Q PAINBUSTER PAIN PUMP [Suspect]
     Indication: MUSCULOSKELETAL PAIN
     Dates: start: 20051223
  6. I-FLOW ON-Q PAINBUSTER PAIN PUMP [Suspect]
     Indication: MUSCULOSKELETAL PAIN
     Dates: start: 20060406
  7. I-FLOW ON-Q PAINBUSTER PAIN PUMP [Suspect]
  8. BUPIVACAINE [Suspect]
     Dosage: 100 ML, 2 ML/HR
     Dates: start: 20051223
  9. MARCAINE [Suspect]
     Indication: MUSCULOSKELETAL PAIN
     Dosage: 250 ML, 2 ML/HR WITH 1 ML BOLUS EVERY 45 MIN, LOCAL INFILTRATION
     Dates: start: 20060406
  10. MARCAINE [Suspect]
     Indication: MUSCULOSKELETAL PAIN
     Dosage: 250 ML, 2 ML/HR WITH 1 ML BOLUS EVERY 45 MIN, LOCAL INFILTRATION
     Dates: start: 20060406
  11. LACTATED RINGERS (FLEBOBAG RICG LACT) [Concomitant]

REACTIONS (14)
  - ARTHROPATHY [None]
  - ASTHENIA [None]
  - CHONDROLYSIS [None]
  - FALL [None]
  - JOINT DISLOCATION [None]
  - JOINT INSTABILITY [None]
  - JOINT RANGE OF MOTION DECREASED [None]
  - MUSCLE ATROPHY [None]
  - MUSCULOSKELETAL PAIN [None]
  - MUSCULOSKELETAL STIFFNESS [None]
  - NECK PAIN [None]
  - PAIN [None]
  - POST PROCEDURAL COMPLICATION [None]
  - SENSORY DISTURBANCE [None]
